FAERS Safety Report 20945400 (Version 1)
Quarter: 2022Q2

REPORT INFORMATION
  Report Type: Report from Study
  Country: BR (occurrence: BR)
  Receive Date: 20220610
  Receipt Date: 20220610
  Transmission Date: 20220721
  Serious: Yes (Hospitalization, Other)
  Sender: FDA-Public Use
  Company Number: BR-JNJFOC-20220413332

PATIENT
  Age: 42 Year
  Sex: Female
  Weight: 110 kg

DRUGS (2)
  1. JANSSEN COVID-19 VACCINE [Suspect]
     Active Substance: AD26.COV2.S
     Indication: Immunisation
     Dosage: DOSE 3
     Route: 065
     Dates: start: 20220401, end: 20220401
  2. SIMPONI [Suspect]
     Active Substance: GOLIMUMAB
     Indication: Rheumatoid arthritis
     Dosage: MEDICATION HAS BEEN OVERDUE FOR 2 MONTHS
     Route: 058
     Dates: start: 20210601

REACTIONS (18)
  - Chest pain [Unknown]
  - Headache [Unknown]
  - Vomiting [Not Recovered/Not Resolved]
  - Back pain [Unknown]
  - Pain [Not Recovered/Not Resolved]
  - Neck pain [Unknown]
  - Arthralgia [Recovering/Resolving]
  - Generalised oedema [Recovering/Resolving]
  - Dyspnoea [Not Recovered/Not Resolved]
  - Nausea [Unknown]
  - Peripheral swelling [Not Recovered/Not Resolved]
  - Joint swelling [Not Recovered/Not Resolved]
  - Finger deformity [Unknown]
  - Bedridden [Unknown]
  - Tremor [Unknown]
  - Nasopharyngitis [Unknown]
  - Inappropriate schedule of product administration [Unknown]
  - Off label use [Unknown]

NARRATIVE: CASE EVENT DATE: 20220401
